FAERS Safety Report 4604938-1 (Version None)
Quarter: 2005Q1

REPORT INFORMATION
  Report Type: 
  Country: None (occurrence: None)
  Receive Date: 20050309
  Receipt Date: 20050309
  Transmission Date: 20050727
  Serious: Yes (Life-Threatening, Hospitalization, Disabling, Congenital Anomaly)
  Sender: FDA-Public Use
  Company Number: None

PATIENT
  Age: 16 Year
  Sex: Female
  Weight: 61.2356 kg

DRUGS (1)
  1. AUGMENTIN '500' [Suspect]
     Dosage: 1 TWICE DAILY

REACTIONS (11)
  - ASTHMA [None]
  - COUGH [None]
  - LUNG DISORDER [None]
  - NAIL DISORDER [None]
  - ONYCHOMADESIS [None]
  - PNEUMONIA [None]
  - SCAR [None]
  - SKIN GRAFT [None]
  - TOXIC EPIDERMAL NECROLYSIS [None]
  - VISUAL ACUITY REDUCED [None]
  - WEIGHT DECREASED [None]
